FAERS Safety Report 7864385-6 (Version None)
Quarter: 2011Q4

REPORT INFORMATION
  Report Type: 
  Country: None (occurrence: None)
  Receive Date: 20111028
  Receipt Date: 20111020
  Transmission Date: 20120403
  Serious: No
  Sender: FDA-Public Use
  Company Number: PHHY2011ZA94378

PATIENT
  Sex: Female

DRUGS (2)
  1. NILOTINIB [Suspect]
     Dosage: UNK UKN, UNK
  2. ORAL CONTRACEPTIVE NOS [Concomitant]
     Dosage: UNK UKN, UNK

REACTIONS (1)
  - MATERNAL EXPOSURE DURING PREGNANCY [None]
